FAERS Safety Report 9438621 (Version 1)
Quarter: 2013Q3

REPORT INFORMATION
  Report Type: Spontaneous
  Country: US (occurrence: US)
  Receive Date: 20130802
  Receipt Date: 20130802
  Transmission Date: 20140515
  Serious: Yes (Other)
  Sender: FDA-Public Use
  Company Number: US-TEVA-422511USA

PATIENT
  Sex: 0
  Weight: 2.62 kg

DRUGS (2)
  1. CISPLATIN [Suspect]
     Indication: OVARIAN CANCER
     Route: 064
  2. PACLITAXEL [Suspect]
     Indication: OVARIAN CANCER
     Route: 064

REACTIONS (7)
  - Tourette^s disorder [Unknown]
  - Asperger^s disorder [Unknown]
  - Jaundice neonatal [Unknown]
  - Dyslexia [Unknown]
  - Speech disorder developmental [Unknown]
  - Hyperbilirubinaemia neonatal [Unknown]
  - Foetal exposure during pregnancy [Recovered/Resolved]
